FAERS Safety Report 24121635 (Version 4)
Quarter: 2024Q4

REPORT INFORMATION
  Report Type: Spontaneous
  Country: US (occurrence: US)
  Receive Date: 20240722
  Receipt Date: 20241211
  Transmission Date: 20250115
  Serious: No
  Sender: BRISTOL-MYERS SQUIBB COMPANY
  Company Number: US-BRISTOL-MYERS SQUIBB COMPANY-2024-116015

PATIENT
  Age: 76 Year
  Sex: Female
  Weight: 79.83 kg

DRUGS (2)
  1. POMALYST [Suspect]
     Active Substance: POMALIDOMIDE
     Indication: Plasma cell myeloma
     Route: 048
  2. POMALYST [Suspect]
     Active Substance: POMALIDOMIDE
     Route: 048

REACTIONS (7)
  - Rash [Recovering/Resolving]
  - Constipation [Recovering/Resolving]
  - COVID-19 [Unknown]
  - Nasopharyngitis [Recovered/Resolved]
  - Night sweats [Not Recovered/Not Resolved]
  - Peripheral swelling [Not Recovered/Not Resolved]
  - Dyspnoea [Not Recovered/Not Resolved]
